FAERS Safety Report 5340373-9 (Version None)
Quarter: 2007Q2

REPORT INFORMATION
  Report Type: 
  Country: None (occurrence: None)
  Receive Date: 20070405
  Receipt Date: 20061226
  Transmission Date: 20071010
  Serious: No
  Sender: FDA-Public Use
  Company Number: US200612004356

PATIENT
  Sex: Male

DRUGS (6)
  1. CYMBALTA [Suspect]
     Indication: NEURALGIA
     Dosage: SEE IMAGE
     Route: 048
     Dates: start: 20061224, end: 20061224
  2. CYMBALTA [Suspect]
     Indication: NEURALGIA
     Dosage: SEE IMAGE
     Route: 048
     Dates: start: 20061225
  3. PERCOCET [Concomitant]
  4. NEURONTIN [Concomitant]
  5. VALIUM /NET/ (DIAZEPAM) [Concomitant]
  6. ESZOPICLONE (ESZOPICLONE) [Concomitant]

REACTIONS (3)
  - DRY MOUTH [None]
  - LIMB DISCOMFORT [None]
  - SEXUAL DYSFUNCTION [None]
